FAERS Safety Report 11651643 (Version 3)
Quarter: 2016Q1

REPORT INFORMATION
  Report Type: Spontaneous
  Country: US (occurrence: US)
  Receive Date: 20151022
  Receipt Date: 20160223
  Transmission Date: 20160525
  Serious: Yes (Disabling, Other)
  Sender: FDA-Public Use
  Company Number: US-BAYER-2015-444287

PATIENT
  Age: 39 Year
  Sex: Female

DRUGS (2)
  1. MIRENA [Suspect]
     Active Substance: LEVONORGESTREL
     Indication: CONTRACEPTION
     Dosage: 20 MCG/24HR, CONT
     Route: 015
     Dates: start: 201006, end: 201401
  2. MIRENA [Suspect]
     Active Substance: LEVONORGESTREL
     Indication: CONTRACEPTION
     Dosage: 20 MCG/24HR, CONT
     Route: 015
     Dates: start: 200404, end: 2010

REACTIONS (25)
  - Anxiety [None]
  - Post-traumatic stress disorder [None]
  - Labyrinthitis [None]
  - Intraocular pressure increased [None]
  - Device issue [None]
  - Balance disorder [None]
  - Vestibular disorder [None]
  - Product use issue [None]
  - Pelvic inflammatory disease [None]
  - Auditory disorder [None]
  - Empty sella syndrome [None]
  - Vestibular neuronitis [None]
  - Ventriculo-peritoneal shunt [None]
  - Cerebral ventricle collapse [None]
  - Visual impairment [None]
  - Visual acuity reduced [None]
  - Emotional distress [None]
  - Injury [None]
  - Pain [None]
  - Memory impairment [None]
  - Depression [None]
  - Benign intracranial hypertension [None]
  - Headache [None]
  - Blindness transient [None]
  - Fatigue [None]

NARRATIVE: CASE EVENT DATE: 2011
